FAERS Safety Report 18968760 (Version 5)
Quarter: 2021Q3

REPORT INFORMATION
  Report Type: Spontaneous
  Country: CA (occurrence: CA)
  Receive Date: 20210304
  Receipt Date: 20210929
  Transmission Date: 20211014
  Serious: Yes (Other)
  Sender: FDA-Public Use
  Company Number: CA-PFIZER INC-2021201179

PATIENT
  Age: 74 Year
  Sex: Female

DRUGS (4)
  1. CRESTOR [Concomitant]
     Active Substance: ROSUVASTATIN CALCIUM
     Dosage: 1 DF
     Route: 065
  2. RUXIENCE [Suspect]
     Active Substance: RITUXIMAB-PVVR
     Dosage: 1000 MG DAY 15
     Route: 042
     Dates: start: 20210315
  3. RUXIENCE [Suspect]
     Active Substance: RITUXIMAB-PVVR
     Indication: RHEUMATOID ARTHRITIS
     Dosage: 1000 MG DAY 1
     Route: 042
     Dates: start: 20210208, end: 20210208
  4. RUXIENCE [Suspect]
     Active Substance: RITUXIMAB-PVVR
     Dosage: 1000 MG, DAY 1 AND DAY 15
     Route: 042
     Dates: start: 20210208, end: 20210315

REACTIONS (5)
  - Pain in extremity [Unknown]
  - Bladder neoplasm [Unknown]
  - Muscle spasms [Unknown]
  - Inappropriate schedule of product administration [Unknown]
  - Discomfort [Unknown]

NARRATIVE: CASE EVENT DATE: 2021
